FAERS Safety Report 9711869 (Version 1)
Quarter: 2013Q4

REPORT INFORMATION
  Report Type: Spontaneous
  Country: US (occurrence: US)
  Receive Date: 20131126
  Receipt Date: 20131126
  Transmission Date: 20140711
  Serious: No
  Sender: FDA-Public Use
  Company Number: US-BRISTOL-MYERS SQUIBB COMPANY-18822460

PATIENT
  Age: 36 Year
  Sex: Male

DRUGS (1)
  1. BYDUREON [Suspect]
     Dosage: 4TH INJECTION
     Dates: start: 20130329

REACTIONS (3)
  - Underdose [Unknown]
  - Injection site haemorrhage [Unknown]
  - Off label use [Unknown]
